FAERS Safety Report 9660975 (Version 2)
Quarter: 2013Q4

REPORT INFORMATION
  Report Type: Report from Study
  Country: US (occurrence: US)
  Receive Date: 20131031
  Receipt Date: 20131031
  Transmission Date: 20140711
  Serious: Yes (Other)
  Sender: FDA-Public Use
  Company Number: US-ABBVIE-12P-163-0951963-00

PATIENT
  Age: 28 Year
  Sex: Female
  Weight: 53.12 kg

DRUGS (18)
  1. HUMIRA 40 MG/ 0.8 ML PRE-FILLED SYRINGE [Suspect]
     Indication: COLITIS ULCERATIVE
     Route: 050
     Dates: start: 20120322, end: 20121112
  2. PRENATAL VITAMINS [Concomitant]
     Indication: PRODUCT USED FOR UNKNOWN INDICATION
     Route: 048
     Dates: start: 20120322, end: 20121112
  3. VITAMIN D3 [Concomitant]
     Indication: PRODUCT USED FOR UNKNOWN INDICATION
     Route: 048
     Dates: start: 20120520, end: 20121112
  4. FOLIC ACID [Concomitant]
     Indication: PRODUCT USED FOR UNKNOWN INDICATION
     Route: 048
     Dates: start: 20120520, end: 20121112
  5. FOLIC ACID [Concomitant]
     Route: 048
     Dates: start: 20120520, end: 20121112
  6. VITAMIN B12 [Concomitant]
     Indication: PRODUCT USED FOR UNKNOWN INDICATION
     Route: 048
     Dates: start: 20120520, end: 20120710
  7. PREDNISONE [Concomitant]
     Indication: COLITIS ULCERATIVE
     Route: 048
     Dates: start: 20120322, end: 20121112
  8. XIFAXAN [Concomitant]
     Indication: COLITIS ULCERATIVE
     Route: 048
     Dates: start: 20120322, end: 20121112
  9. AZATHIOPRINE [Concomitant]
     Indication: COLITIS ULCERATIVE
     Route: 048
     Dates: start: 20120322, end: 20121112
  10. ENOXAPARIN [Concomitant]
     Indication: PROPHYLAXIS
     Route: 050
     Dates: start: 20120617, end: 20121112
  11. ENOXAPARIN [Concomitant]
     Indication: BLOOD DISORDER
  12. TYLENOL [Concomitant]
     Indication: PAIN
     Route: 048
     Dates: start: 20120701, end: 20121112
  13. TYLENOL [Concomitant]
     Indication: GASTROINTESTINAL PAIN
  14. TUMS [Concomitant]
     Indication: DYSPEPSIA
     Route: 048
     Dates: start: 20120522, end: 20121112
  15. PREPARATION H [Concomitant]
     Indication: HAEMORRHOIDS
     Dosage: TOPICAL: VAGINAL
     Route: 061
     Dates: start: 20120509, end: 20120606
  16. TEA (GREEN TEA AND ICED TEA) [Concomitant]
     Indication: PRODUCT USED FOR UNKNOWN INDICATION
     Route: 048
     Dates: start: 20120322, end: 20120710
  17. WINE [Concomitant]
     Indication: PRODUCT USED FOR UNKNOWN INDICATION
     Dosage: 1 SERVING
     Route: 048
     Dates: start: 20120420, end: 20120420
  18. FLU VACCINE NOS [Concomitant]
     Indication: PREGNANCY
     Dosage: 1 SHOT IN 1 DAY
     Dates: start: 20121011, end: 20121011

REACTIONS (8)
  - Abortion spontaneous [Unknown]
  - HELLP syndrome [Unknown]
  - Gastrointestinal pain [Unknown]
  - Dyspepsia [Unknown]
  - Haemorrhoids [Unknown]
  - Colitis [Unknown]
  - Cholecystitis [Unknown]
  - Nephritis [Unknown]
